FAERS Safety Report 6655330-X (Version None)
Quarter: 2010Q1

REPORT INFORMATION
  Report Type: 
  Country: None (occurrence: None)
  Receive Date: 20100329
  Receipt Date: 20100317
  Transmission Date: 20100710
  Serious: Yes (Disabling, Other)
  Sender: FDA-Public Use
  Company Number: PHHY2008GB19159

PATIENT
  Age: 47 Year
  Sex: Female

DRUGS (7)
  1. OXCARBAZEPINE [Suspect]
     Indication: AFFECTIVE DISORDER
     Dosage: 300 MG, BID
     Route: 048
     Dates: start: 20080719, end: 20080808
  2. LAMOTRIGINE [Concomitant]
     Indication: AFFECTIVE DISORDER
     Dosage: 150 MG, BID
     Route: 048
  3. LANSOPRAZOLE [Concomitant]
     Indication: DYSPEPSIA
     Dosage: 15 MG, UNK
     Route: 048
  4. LITHIUM [Concomitant]
     Indication: AFFECTIVE DISORDER
     Dosage: 1000 MG, UNK
     Route: 048
  5. OLANZAPINE [Concomitant]
     Indication: AFFECTIVE DISORDER
     Dosage: 20 MG, UNK
     Route: 048
  6. LORAZEPAM [Concomitant]
     Indication: AGITATION
  7. SENNA [Concomitant]
     Indication: CONSTIPATION
     Dosage: UNK
     Route: 048

REACTIONS (6)
  - INFLUENZA LIKE ILLNESS [None]
  - LYMPHADENOPATHY [None]
  - LYMPHOCYTE COUNT DECREASED [None]
  - OROPHARYNGEAL PAIN [None]
  - PETECHIAE [None]
  - PYREXIA [None]
